FAERS Safety Report 5897226-7 (Version None)
Quarter: 2008Q3

REPORT INFORMATION
  Report Type: 
  Country: None (occurrence: None)
  Receive Date: 20080923
  Receipt Date: 20080911
  Transmission Date: 20090109
  Serious: Yes (Death, Hospitalization, Other)
  Sender: FDA-Public Use
  Company Number: 52393

PATIENT
  Age: 67 Year
  Sex: Female

DRUGS (2)
  1. DILTIAZEM HCL [Suspect]
  2. METOPROLOL TITRATE INJ. 5MG/5ML [Suspect]

REACTIONS (3)
  - CARDIOGENIC SHOCK [None]
  - DIZZINESS [None]
  - NAUSEA [None]
